FAERS Safety Report 11189517 (Version 4)
Quarter: 2015Q3

REPORT INFORMATION
  Report Type: Report from Study
  Country: FI (occurrence: FI)
  Receive Date: 20150615
  Receipt Date: 20150709
  Transmission Date: 20151125
  Serious: Yes (Hospitalization)
  Sender: FDA-Public Use
  Company Number: FI-ABBVIE-15P-055-1405782-00

PATIENT
  Age: 77 Year
  Sex: Male

DRUGS (5)
  1. CITALOPRAM [Suspect]
     Active Substance: CITALOPRAM HYDROBROMIDE
     Indication: DEPRESSION
     Route: 065
  2. DUODOPA [Suspect]
     Active Substance: CARBIDOPA\LEVODOPA
     Indication: PARKINSON^S DISEASE
     Dosage: MD 4.2 ML, CD 3.8 ML/H, ED 1 ML 4 TIMES A DAY, 24 H TREATMENT
     Route: 050
     Dates: start: 2010
  3. DUODOPA [Suspect]
     Active Substance: CARBIDOPA\LEVODOPA
     Dosage: MD 4.2 ML, CD 3.8 ML/H, ED 1 ML 3-4 TIMES A DAY, 24H TREATMENT
     Route: 050
  4. ALPROX [Concomitant]
     Active Substance: ALPRAZOLAM
     Indication: PRODUCT USED FOR UNKNOWN INDICATION
  5. EDRONAX [Suspect]
     Active Substance: REBOXETINE MESYLATE
     Indication: DEPRESSION
     Route: 065

REACTIONS (17)
  - Gait disturbance [Recovered/Resolved]
  - Drug prescribing error [Unknown]
  - Drug effect incomplete [Unknown]
  - Anxiety [Recovering/Resolving]
  - Hyperkinesia [Recovered/Resolved]
  - Freezing phenomenon [Recovered/Resolved]
  - On and off phenomenon [Recovered/Resolved]
  - General physical health deterioration [Recovered/Resolved]
  - Nausea [Recovered/Resolved]
  - Therapy change [Unknown]
  - Drug dose omission [Unknown]
  - Psychomotor hyperactivity [Unknown]
  - Mania [Recovering/Resolving]
  - Aggression [Unknown]
  - Inappropriate schedule of drug administration [Unknown]
  - On and off phenomenon [Unknown]
  - Incorrect dose administered [Unknown]

NARRATIVE: CASE EVENT DATE: 20150611
